FAERS Safety Report 6183459-1 (Version None)
Quarter: 2009Q2

REPORT INFORMATION
  Report Type: 
  Country: None (occurrence: None)
  Receive Date: 20090506
  Receipt Date: 20081216
  Transmission Date: 20091009
  Serious: Yes (Hospitalization, Other)
  Sender: FDA-Public Use
  Company Number: 2008AP003490

PATIENT
  Age: 38 Year
  Sex: Male

DRUGS (11)
  1. FLUCONAZOLE [Suspect]
     Indication: PNEUMOCYSTIS JIROVECI PNEUMONIA
     Dosage: 400 MG; QD; IV
     Route: 042
  2. HYDROCHLOROTHIAZIDE [Concomitant]
  3. METOPROLOL TARTRATE [Concomitant]
  4. ACETYLSALICYLIC ACID [Concomitant]
  5. AMPICILLIN [Concomitant]
  6. SULBACTAM [Concomitant]
  7. AZITHROMYCIN [Concomitant]
  8. VANCOMYCIN HCL [Concomitant]
  9. IMIPENEM [Concomitant]
  10. TRIMETHOPRIM [Concomitant]
  11. SULFAMETHOXAZOLE AND TRIMETHOPRIM [Concomitant]

REACTIONS (1)
  - ADRENAL INSUFFICIENCY [None]
